FAERS Safety Report 19490345 (Version 1)
Quarter: 2021Q3

REPORT INFORMATION
  Report Type: Report from Study
  Country: None (occurrence: IL)
  Receive Date: 20210705
  Receipt Date: 20210705
  Transmission Date: 20211014
  Serious: Yes (Death)
  Sender: FDA-Public Use
  Company Number: IL-ABBVIE-21K-082-3800279-00

PATIENT
  Sex: Female

DRUGS (5)
  1. DUODOPA [Suspect]
     Active Substance: CARBIDOPA\LEVODOPA
     Indication: PARKINSON^S DISEASE
     Dosage: MD(ML) 10.5, CD(ML/H) 2.5, ED (ML) 1.5, THERAPY DURATION (HRS) ? REMAINS AT 16
     Route: 050
     Dates: start: 20201103
  2. DUODOPA [Suspect]
     Active Substance: CARBIDOPA\LEVODOPA
     Dosage: MD(ML) 10.5, CD(ML/H) 3.0, EXTRA DOSAGE (ML) 2.0, THERAPY DURATION (HRS) ? REMAINS AT 16
     Route: 050
  3. DUODOPA [Suspect]
     Active Substance: CARBIDOPA\LEVODOPA
     Dosage: MD(ML) 10.5, CD(ML/H)3.0, ED(ML) 1.5, THERAPY DURATION (HRS) ? REMAINS AT 16
     Route: 050
  4. DUODOPA [Suspect]
     Active Substance: CARBIDOPA\LEVODOPA
     Dosage: MOR CD (ML/H)  3.7 , THERAPY DURATION (HRS) REMAINS AT 16
     Route: 050
  5. DUODOPA [Suspect]
     Active Substance: CARBIDOPA\LEVODOPA
     Dosage: MD(ML)  10.5 ,CD(ML/H)  3.5 , ED (ML)  2.0 ,THERAPY DURATION (HRS) REMAINS AT 16
     Route: 050

REACTIONS (2)
  - Cancer pain [Not Recovered/Not Resolved]
  - Malignant neoplasm progression [Fatal]
